FAERS Safety Report 8348244-0 (Version None)
Quarter: 2012Q2

REPORT INFORMATION
  Report Type: 
  Country: None (occurrence: None)
  Receive Date: 20120509
  Receipt Date: 20120503
  Transmission Date: 20120825
  Serious: Yes (Hospitalization)
  Sender: FDA-Public Use
  Company Number: PH-JNJFOC-20080700138

PATIENT
  Sex: Female
  Weight: 64 kg

DRUGS (42)
  1. GOLIMUMAB [Suspect]
     Route: 058
     Dates: start: 20070206
  2. GOLIMUMAB [Suspect]
     Route: 058
     Dates: start: 20071220
  3. GOLIMUMAB [Suspect]
     Route: 058
     Dates: start: 20080505
  4. GOLIMUMAB [Suspect]
     Route: 058
     Dates: start: 20060823
  5. GOLIMUMAB [Suspect]
     Route: 058
     Dates: start: 20061213
  6. GOLIMUMAB [Suspect]
     Route: 058
     Dates: start: 20070802
  7. GOLIMUMAB [Suspect]
     Route: 058
     Dates: start: 20070702
  8. GOLIMUMAB [Suspect]
     Route: 058
     Dates: start: 20070306
  9. GOLIMUMAB [Suspect]
     Route: 058
     Dates: start: 20070925
  10. METHOTREXATE [Suspect]
     Indication: RHEUMATOID ARTHRITIS
     Route: 048
     Dates: start: 20070307, end: 20070821
  11. DIAMICRON MR [Concomitant]
     Route: 048
     Dates: start: 20061126
  12. FOLIC ACID [Concomitant]
     Route: 048
     Dates: start: 20071024
  13. GOLIMUMAB [Suspect]
     Route: 058
     Dates: start: 20061115
  14. METHOTREXATE [Suspect]
     Route: 048
     Dates: start: 20060913, end: 20060920
  15. TRAMADOL HYDROCHLORIDE AND ACETAMINOPHEN [Concomitant]
     Route: 048
     Dates: start: 20060206
  16. GOLIMUMAB [Suspect]
     Indication: RHEUMATOID ARTHRITIS
     Route: 058
     Dates: start: 20071023
  17. GOLIMUMAB [Suspect]
     Route: 058
     Dates: start: 20080416
  18. GOLIMUMAB [Suspect]
     Route: 058
     Dates: start: 20070109
  19. GOLIMUMAB [Suspect]
     Route: 058
     Dates: start: 20061017
  20. METHOTREXATE [Suspect]
     Route: 048
     Dates: start: 20060906, end: 20060906
  21. LIFEZAAR [Concomitant]
     Route: 048
     Dates: start: 20070407
  22. DIOVAN [Concomitant]
  23. GOLIMUMAB [Suspect]
     Route: 058
     Dates: start: 20080115
  24. GOLIMUMAB [Suspect]
     Route: 058
     Dates: start: 20060920
  25. GOLIMUMAB [Suspect]
     Route: 058
     Dates: start: 20070904
  26. GOLIMUMAB [Suspect]
     Route: 058
     Dates: start: 20070403
  27. METHOTREXATE [Suspect]
     Route: 048
     Dates: start: 20060927, end: 20061004
  28. METHOTREXATE [Concomitant]
     Route: 048
     Dates: start: 20080126, end: 20080616
  29. PREDNISONE TAB [Concomitant]
     Route: 048
  30. LIPITOR [Concomitant]
     Route: 048
     Dates: start: 20070605
  31. GOLIMUMAB [Suspect]
     Route: 058
     Dates: start: 20071129
  32. GOLIMUMAB [Suspect]
     Route: 058
     Dates: start: 20080326
  33. GOLIMUMAB [Suspect]
     Route: 058
     Dates: start: 20080605
  34. METHOTREXATE [Suspect]
     Route: 048
     Dates: start: 20061011, end: 20070228
  35. METHOTREXATE [Suspect]
     Route: 048
     Dates: start: 20060823, end: 20060830
  36. METHOTREXATE [Concomitant]
     Route: 048
     Dates: start: 20080623
  37. CALCI-ACID [Concomitant]
     Route: 048
     Dates: start: 20070605
  38. BONIVA [Concomitant]
     Route: 048
     Dates: start: 20080515
  39. GOLIMUMAB [Suspect]
     Route: 058
     Dates: start: 20080215
  40. GOLIMUMAB [Suspect]
     Route: 058
     Dates: start: 20070605
  41. GOLIMUMAB [Suspect]
     Route: 058
     Dates: start: 20070508
  42. METHOTREXATE [Concomitant]
     Route: 048
     Dates: start: 20070828, end: 20071219

REACTIONS (1)
  - PULMONARY TUBERCULOSIS [None]
